FAERS Safety Report 20330865 (Version 4)
Quarter: 2022Q1

REPORT INFORMATION
  Report Type: Spontaneous
  Country: AR (occurrence: AR)
  Receive Date: 20220113
  Receipt Date: 20220225
  Transmission Date: 20220423
  Serious: Yes (Other)
  Sender: FDA-Public Use
  Company Number: AR-BRISTOL-MYERS SQUIBB COMPANY-BMS-2022-004061

PATIENT
  Age: 77 Year
  Sex: Female
  Weight: 69 kg

DRUGS (4)
  1. ELIQUIS [Suspect]
     Active Substance: APIXABAN
     Indication: Embolism venous
     Dosage: 10 MILLIGRAM, BID
     Route: 065
     Dates: start: 20211230, end: 20220106
  2. ELIQUIS [Suspect]
     Active Substance: APIXABAN
     Dosage: 5 MILLIGRAM, BID
     Route: 065
     Dates: start: 20220106
  3. ROSUVASTATIN [Concomitant]
     Active Substance: ROSUVASTATIN
     Indication: Blood cholesterol abnormal
     Dosage: 10 MG DAILY
     Route: 065
  4. VENART [ASCORBIC ACID;HESPERIDIN METHYL CHALCONE;RUSCUS ACULEATUS] [Concomitant]
     Indication: Product used for unknown indication
     Dosage: 2 CAPSULES
     Route: 065

REACTIONS (4)
  - Dizziness [Unknown]
  - Hypotension [Recovered/Resolved]
  - Dehydration [Unknown]
  - Vomiting [Unknown]

NARRATIVE: CASE EVENT DATE: 20220105
